FAERS Safety Report 22007699 (Version 1)
Quarter: 2023Q1

REPORT INFORMATION
  Report Type: Spontaneous
  Country: AU (occurrence: AU)
  Receive Date: 20230218
  Receipt Date: 20230218
  Transmission Date: 20230418
  Serious: Yes (Other)
  Sender: FDA-Public Use
  Company Number: AU-AMGEN-AUSSP2023027255

PATIENT
  Age: 57 Year
  Sex: Female

DRUGS (4)
  1. XGEVA [Suspect]
     Active Substance: DENOSUMAB
     Indication: Breast cancer metastatic
     Dosage: UNK
     Route: 065
  2. LETROZOLE [Suspect]
     Active Substance: LETROZOLE
     Indication: Breast cancer metastatic
     Dosage: UNK
     Route: 065
  3. RIBOCICLIB [Suspect]
     Active Substance: RIBOCICLIB
     Indication: Breast cancer metastatic
     Dosage: UNK
     Route: 065
  4. ABEMACICLIB [Concomitant]
     Active Substance: ABEMACICLIB
     Indication: Product used for unknown indication

REACTIONS (4)
  - Metastases to bone [Unknown]
  - Metastases to lymph nodes [Unknown]
  - Pleural effusion [Unknown]
  - BRCA2 gene mutation [Unknown]
